FAERS Safety Report 7297078-7 (Version None)
Quarter: 2011Q1

REPORT INFORMATION
  Report Type: 
  Country: None (occurrence: None)
  Receive Date: 20110216
  Receipt Date: 20110207
  Transmission Date: 20110831
  Serious: Yes (Death, Hospitalization, Other)
  Sender: FDA-Public Use
  Company Number: GB-TEVA-266832ISR

PATIENT
  Age: 86 Year
  Sex: Male
  Weight: 82.55 kg

DRUGS (2)
  1. SINEMET [Suspect]
     Indication: PARKINSON'S DISEASE
     Dates: start: 20090101
  2. TRAMADOL [Suspect]
     Indication: BACK PAIN
     Route: 048
     Dates: start: 20090209, end: 20090210

REACTIONS (12)
  - CEREBRAL INFARCTION [None]
  - PNEUMONIA [None]
  - DRUG INTERACTION [None]
  - HEADACHE [None]
  - PULMONARY EMBOLISM [None]
  - ACUTE MYOCARDIAL INFARCTION [None]
  - MENINGITIS [None]
  - SEPSIS [None]
  - SUBARACHNOID HAEMORRHAGE [None]
  - CONFUSIONAL STATE [None]
  - CEREBRAL ISCHAEMIA [None]
  - NECK PAIN [None]
